FAERS Safety Report 4476887-3 (Version None)
Quarter: 2004Q4

REPORT INFORMATION
  Report Type: 
  Country: None (occurrence: None)
  Receive Date: 20041013
  Receipt Date: 20040928
  Transmission Date: 20050328
  Serious: Yes (Hospitalization)
  Sender: FDA-Public Use
  Company Number: 200677

PATIENT
  Age: 44 Year
  Sex: Male

DRUGS (5)
  1. AVONEX [Suspect]
     Indication: MULTIPLE SCLEROSIS
     Route: 030
     Dates: start: 19980101
  2. AVONEX [Suspect]
     Indication: MULTIPLE SCLEROSIS
  3. L ARGININE [Concomitant]
  4. GINKOBA [Concomitant]
  5. YOHIMBINE [Concomitant]

REACTIONS (2)
  - ASTHENIA [None]
  - COMA [None]
